FAERS Safety Report 25855277 (Version 2)
Quarter: 2025Q4

REPORT INFORMATION
  Report Type: Report from Study
  Country: GB (occurrence: GB)
  Receive Date: 20250927
  Receipt Date: 20251009
  Transmission Date: 20260117
  Serious: Yes (Other)
  Sender: CELLTRION
  Company Number: GB-CELLTRION INC.-2025GB032765

PATIENT

DRUGS (1)
  1. INFLIXIMAB-DYYB [Suspect]
     Active Substance: INFLIXIMAB-DYYB
     Indication: Crohn^s disease
     Dosage: 120MG EVERY 2 WEEKS/120MG/1ML SOLUTION FOR INJECTION PRE-FILLED PENS INJECT ONE PRE-FILLED PEN EVERY
     Route: 058
     Dates: start: 202504

REACTIONS (4)
  - Oral mucosal discolouration [Unknown]
  - Fear of injection [Unknown]
  - Chronic fatigue syndrome [Unknown]
  - Intentional dose omission [Unknown]
